FAERS Safety Report 22039625 (Version 1)
Quarter: 2023Q1

REPORT INFORMATION
  Report Type: Report from Study
  Country: SK (occurrence: SK)
  Receive Date: 20230227
  Receipt Date: 20230227
  Transmission Date: 20230418
  Serious: Yes (Hospitalization)
  Sender: FDA-Public Use
  Company Number: SK-MYLANLABS-2023M1020978

PATIENT
  Age: 14 Year
  Sex: Male

DRUGS (2)
  1. OLANZAPINE [Suspect]
     Active Substance: OLANZAPINE
     Indication: Narcolepsy
     Dosage: UNK
     Route: 065
  2. VORTIOXETINE [Suspect]
     Active Substance: VORTIOXETINE
     Indication: Narcolepsy
     Dosage: UNK
     Route: 065

REACTIONS (1)
  - Treatment failure [Unknown]
